FAERS Safety Report 10094592 (Version 1)
Quarter: 2014Q2

REPORT INFORMATION
  Report Type: Spontaneous
  Country: US (occurrence: None)
  Receive Date: 20140421
  Receipt Date: 20140421
  Transmission Date: 20141212
  Serious: Yes (Hospitalization, Disabling)
  Sender: FDA-Public Use
  Company Number: None

PATIENT
  Age: 57 Year
  Sex: Female

DRUGS (1)
  1. CIPROFLOXACIN 500 MG COBALT [Suspect]
     Indication: DIVERTICULITIS
     Route: 048
     Dates: start: 20140407, end: 20140413

REACTIONS (5)
  - Paraesthesia [None]
  - Hypoaesthesia [None]
  - Pain [None]
  - Fatigue [None]
  - Asthenia [None]
